FAERS Safety Report 4648346-6 (Version None)
Quarter: 2005Q2

REPORT INFORMATION
  Report Type: 
  Country: None (occurrence: None)
  Receive Date: 20050427
  Receipt Date: 20050407
  Transmission Date: 20051028
  Serious: Yes (Life-Threatening, Other)
  Sender: FDA-Public Use
  Company Number: JP_050406314

PATIENT
  Age: 71 Year
  Sex: Female

DRUGS (5)
  1. ONCOVIN [Suspect]
     Indication: ACUTE LYMPHOCYTIC LEUKAEMIA
     Dosage: 1.4 MG OTHER
     Dates: start: 20050131, end: 20050218
  2. CYCLOPHOSPHAMIDE [Concomitant]
  3. DAUNORUBICIN HYDROCHLORIDE [Concomitant]
  4. LEUNASE (ASPARAGINASE) [Concomitant]
  5. GRAN (FILGRASTIM) [Concomitant]

REACTIONS (1)
  - LIVER DISORDER [None]
